FAERS Safety Report 21891093 (Version 4)
Quarter: 2023Q2

REPORT INFORMATION
  Report Type: Spontaneous
  Country: JP (occurrence: JP)
  Receive Date: 20230120
  Receipt Date: 20230529
  Transmission Date: 20230721
  Serious: Yes (Death, Other)
  Sender: FDA-Public Use
  Company Number: JP-TAKEDA-2023TJP000473

PATIENT
  Age: 88 Year
  Sex: Female

DRUGS (1)
  1. ADCETRIS [Suspect]
     Active Substance: BRENTUXIMAB VEDOTIN
     Indication: Adult T-cell lymphoma/leukaemia recurrent
     Dosage: UNK
     Route: 041
     Dates: start: 202211

REACTIONS (1)
  - Adult T-cell lymphoma/leukaemia recurrent [Fatal]
